FAERS Safety Report 21808297 (Version 1)
Quarter: 2023Q1

REPORT INFORMATION
  Report Type: Spontaneous
  Country: US (occurrence: US)
  Receive Date: 20230103
  Receipt Date: 20230103
  Transmission Date: 20230418
  Serious: No
  Sender: FDA-Public Use
  Company Number: US-Ipsen Biopharmaceuticals, Inc.-2022-34908

PATIENT

DRUGS (1)
  1. DYSPORT [Suspect]
     Active Substance: ABOBOTULINUMTOXINA
     Indication: Skin cosmetic procedure
     Dosage: 50 UNITS INTO THE GLABELLA REGION AND 25 UNITS INTO THE FRONTALIS REGION
     Route: 065
     Dates: start: 20221017, end: 20221017

REACTIONS (1)
  - Drug ineffective [Unknown]
